FAERS Safety Report 8085586-0 (Version None)
Quarter: 2012Q1

REPORT INFORMATION
  Report Type: 
  Country: None (occurrence: None)
  Receive Date: 20120128
  Receipt Date: 20110404
  Transmission Date: 20120608
  Serious: No
  Sender: FDA-Public Use
  Company Number: US-ABBOTT-11P-163-0716206-00

PATIENT
  Sex: Female
  Weight: 72.64 kg

DRUGS (12)
  1. HUMIRA [Suspect]
     Indication: RHEUMATOID ARTHRITIS
     Route: 058
     Dates: start: 20110201
  2. COLCRYS [Concomitant]
     Indication: GOUT
  3. NEXIUM [Concomitant]
     Indication: BARRETT'S OESOPHAGUS
     Dosage: NOT REPORTED
  4. LYRICA [Concomitant]
     Indication: FIBROMYALGIA
  5. PREDNISONE TAB [Concomitant]
     Indication: RHEUMATOID ARTHRITIS
  6. ATENOLOL [Concomitant]
     Indication: HYPERTENSION
     Dosage: ONE AND A HALF TABS PER DAY
  7. SULAR [Concomitant]
     Indication: HYPERTENSION
  8. JENUVA [Concomitant]
     Indication: DIABETES MELLITUS
  9. METFFORMIN HYDROCHLORIDE [Concomitant]
     Indication: DIABETES MELLITUS
     Dosage: 1 IN MORNING AND 2 AT NIGHT.
  10. METHOTREXATE [Concomitant]
     Indication: RHEUMATOID ARTHRITIS
     Dosage: 3 TABS ON SUNDAY
  11. VYTORIN [Concomitant]
     Indication: BLOOD CHOLESTEROL INCREASED
     Dosage: 10/20
  12. FOLIC ACID [Concomitant]
     Indication: RHEUMATOID ARTHRITIS

REACTIONS (1)
  - VISION BLURRED [None]
